FAERS Safety Report 23317213 (Version 3)
Quarter: 2024Q4

REPORT INFORMATION
  Report Type: Spontaneous
  Country: US (occurrence: US)
  Receive Date: 20231219
  Receipt Date: 20241017
  Transmission Date: 20250114
  Serious: No
  Sender: ROCHE
  Company Number: US-ROCHE-3376904

PATIENT
  Sex: Male

DRUGS (1)
  1. HEMLIBRA [Suspect]
     Active Substance: EMICIZUMAB-KXWH
     Indication: Factor VIII deficiency
     Dosage: STRENGTH- 104 MG/ 0.7ML
     Route: 058
     Dates: start: 202304

REACTIONS (3)
  - Pain [Unknown]
  - Swelling [Unknown]
  - Haemorrhage [Unknown]
